FAERS Safety Report 14411519 (Version 1)
Quarter: 2018Q1

REPORT INFORMATION
  Report Type: Spontaneous
  Country: CA (occurrence: CA)
  Receive Date: 20180119
  Receipt Date: 20180119
  Transmission Date: 20180509
  Serious: Yes (Other)
  Sender: FDA-Public Use
  Company Number: CA-CELLTRION INC.-2017CA011104

PATIENT

DRUGS (7)
  1. CYANOCOBALAMIN. [Concomitant]
     Active Substance: CYANOCOBALAMIN
     Dosage: 1000 MCG
     Route: 060
     Dates: start: 20170601
  2. INFLECTRA [Suspect]
     Active Substance: INFLIXIMAB-DYYB
     Indication: COLITIS ULCERATIVE
     Dosage: 400 MG, CYCLIC,0,2 AND 6 WEEKS THEN EVERY 8 WEEKS
     Route: 042
     Dates: start: 20170727
  3. FERROUS SULFATE. [Concomitant]
     Active Substance: FERROUS SULFATE
     Dosage: 150 MG, UNK
     Route: 048
     Dates: start: 2011
  4. INFLECTRA [Suspect]
     Active Substance: INFLIXIMAB-DYYB
     Dosage: 740 MG, CYCLIC EVERY 8 WEEKS
     Route: 042
     Dates: end: 20171031
  5. PREDNISONE. [Concomitant]
     Active Substance: PREDNISONE
     Dosage: 30 MG, DAILY
     Route: 065
     Dates: start: 20160501
  6. MEZAVANT [Concomitant]
     Active Substance: MESALAMINE
     Dosage: 4.8 G, UNK
     Route: 065
     Dates: start: 2011
  7. PREDNISONE. [Concomitant]
     Active Substance: PREDNISONE
     Dosage: 10 MG, UNK
     Route: 065

REACTIONS (14)
  - Diarrhoea haemorrhagic [Not Recovered/Not Resolved]
  - Infusion related reaction [Recovered/Resolved]
  - Feeling hot [Recovering/Resolving]
  - Somnolence [Recovering/Resolving]
  - Chest discomfort [Recovering/Resolving]
  - Fatigue [Recovering/Resolving]
  - Headache [Unknown]
  - Retching [Recovering/Resolving]
  - Pruritus [Recovering/Resolving]
  - Nausea [Recovering/Resolving]
  - Palpitations [Unknown]
  - Body temperature increased [Recovering/Resolving]
  - Drug ineffective [Unknown]
  - Dizziness [Recovering/Resolving]

NARRATIVE: CASE EVENT DATE: 2017
